FAERS Safety Report 8152796-3 (Version None)
Quarter: 2012Q1

REPORT INFORMATION
  Report Type: 
  Country: None (occurrence: None)
  Receive Date: 20120221
  Receipt Date: 20120209
  Transmission Date: 20120608
  Serious: Yes (Hospitalization, Other)
  Sender: FDA-Public Use
  Company Number: DK-JNJFOC-20091200228

PATIENT
  Sex: Male
  Weight: 99 kg

DRUGS (9)
  1. REMICADE [Suspect]
     Route: 042
     Dates: start: 20091109, end: 20091109
  2. METHOTREXATE [Concomitant]
     Dates: start: 20091117
  3. REMICADE [Suspect]
     Indication: PSORIASIS
     Route: 042
     Dates: start: 20080919
  4. PYRIDOXINE HCL [Concomitant]
  5. REMICADE [Suspect]
     Dosage: 5 DOSES
     Route: 042
     Dates: start: 20090101
  6. METHOTREXATE [Concomitant]
     Indication: PSORIASIS
     Dates: start: 20090411
  7. REMICADE [Suspect]
     Route: 042
     Dates: start: 20080411
  8. SIMVASTATIN [Concomitant]
     Indication: HYPERCHOLESTEROLAEMIA
     Dates: start: 20090122
  9. ISONIAZID [Concomitant]
     Indication: ANTIBIOTIC PROPHYLAXIS
     Route: 048
     Dates: start: 20090914, end: 20091109

REACTIONS (11)
  - CYANOSIS [None]
  - HYPERTHERMIA [None]
  - DYSPNOEA [None]
  - SERUM SICKNESS-LIKE REACTION [None]
  - BRONCHOSPASM [None]
  - ARTERIOSCLEROSIS [None]
  - INFUSION RELATED REACTION [None]
  - PYREXIA [None]
  - CHILLS [None]
  - MALAISE [None]
  - BACK PAIN [None]
